FAERS Safety Report 5846669-6 (Version None)
Quarter: 2008Q3

REPORT INFORMATION
  Report Type: 
  Country: None (occurrence: None)
  Receive Date: 20080815
  Receipt Date: 20080808
  Transmission Date: 20090109
  Serious: Yes (Death, Life-Threatening, Hospitalization)
  Sender: FDA-Public Use
  Company Number: B0532482A

PATIENT
  Age: 72 Year
  Sex: Male

DRUGS (1)
  1. ARIXTRA [Suspect]
     Indication: DRUG USE FOR UNKNOWN INDICATION
     Route: 065
     Dates: end: 20080529

REACTIONS (12)
  - CARDIAC FAILURE [None]
  - COMA [None]
  - CONFUSIONAL STATE [None]
  - FALL [None]
  - HEAD INJURY [None]
  - HEMIPARESIS [None]
  - PNEUMONIA [None]
  - PNEUMONIA ASPIRATION [None]
  - RENAL FAILURE CHRONIC [None]
  - RESPIRATORY DISTRESS [None]
  - STAPHYLOCOCCAL INFECTION [None]
  - SUBDURAL HAEMATOMA [None]
